FAERS Safety Report 4610603-7 (Version None)
Quarter: 2005Q2

REPORT INFORMATION
  Report Type: 
  Country: None (occurrence: None)
  Receive Date: 20050301
  Receipt Date: 20041202
  Transmission Date: 20051028
  Serious: No
  Sender: FDA-Public Use
  Company Number: WAES 0412USA00301

PATIENT
  Age: 79 Year
  Sex: Male
  Weight: 74.8435 kg

DRUGS (5)
  1. ZETIA [Suspect]
     Indication: HYPERCHOLESTEROLAEMIA
     Dosage: PO
     Route: 048
     Dates: start: 20041026
  2. PROVIGIL [Suspect]
     Indication: FATIGUE
     Dosage: 100 MG/DAILY/PO
     Route: 048
     Dates: start: 20041019, end: 20041025
  3. PROVIGIL [Suspect]
     Indication: FATIGUE
     Dosage: 200 MG/DAILY/PO
     Route: 048
     Dates: start: 20041026
  4. REQUIP [Concomitant]
  5. STALEVO 100 [Concomitant]

REACTIONS (3)
  - BALANCE DISORDER [None]
  - DIFFICULTY IN WALKING [None]
  - DRUG INTERACTION [None]
